FAERS Safety Report 6290797-0 (Version None)
Quarter: 2009Q3

REPORT INFORMATION
  Report Type: 
  Country: None (occurrence: None)
  Receive Date: 20090729
  Receipt Date: 20090729
  Transmission Date: 20100115
  Serious: Yes (Other)
  Sender: FDA-Public Use
  Company Number: None

PATIENT
  Age: 20 Year
  Sex: Male

DRUGS (3)
  1. PHENYTOIN [Suspect]
     Indication: PROPHYLAXIS
     Dosage: 60 MG, 3 DAY, INJECTION
     Dates: start: 20090405, end: 20090505
  2. COLISTIN SULFATE [Concomitant]
  3. BACLOFEN [Concomitant]

REACTIONS (2)
  - HEPATIC ENZYME ABNORMAL [None]
  - INFECTION [None]
